FAERS Safety Report 9383746 (Version 2)
Quarter: 2013Q3

REPORT INFORMATION
  Report Type: Spontaneous
  Country: US (occurrence: US)
  Receive Date: 20130704
  Receipt Date: 20130816
  Transmission Date: 20140515
  Serious: Yes (Death)
  Sender: FDA-Public Use
  Company Number: US-PFIZER INC-2013193379

PATIENT
  Age: 66 Year
  Sex: Female

DRUGS (1)
  1. ZYVOX [Suspect]
     Indication: CELLULITIS STAPHYLOCOCCAL
     Dosage: 600 MG, 2X/DAY
     Route: 048
     Dates: start: 20130607

REACTIONS (1)
  - Death [Fatal]
